FAERS Safety Report 12396878 (Version 1)
Quarter: 2016Q2

REPORT INFORMATION
  Report Type: Spontaneous
  Country: US (occurrence: None)
  Receive Date: 20160523
  Receipt Date: 20160523
  Transmission Date: 20160815
  Serious: No
  Sender: FDA-Public Use
  Company Number: None

PATIENT
  Sex: Female

DRUGS (2)
  1. HUMALOG [Suspect]
     Active Substance: INSULIN LISPRO
  2. TOUJEO [Suspect]
     Active Substance: INSULIN GLARGINE

REACTIONS (7)
  - Burning sensation [None]
  - Muscle spasms [None]
  - Feeling of body temperature change [None]
  - Hypoaesthesia [None]
  - Muscular weakness [None]
  - Hyperhidrosis [None]
  - Blister infected [None]
